FAERS Safety Report 5267311-1 (Version None)
Quarter: 2007Q1

REPORT INFORMATION
  Report Type: 
  Country: None (occurrence: None)
  Receive Date: 20070316
  Receipt Date: 20070314
  Transmission Date: 20070707
  Serious: Yes (Life-Threatening)
  Sender: FDA-Public Use
  Company Number: JP-JPN-A200701041

PATIENT
  Age: 24 Year
  Sex: Male

DRUGS (10)
  1. EPIVIR [Suspect]
     Indication: HIV INFECTION
     Dosage: 300MG PER DAY
     Route: 048
     Dates: start: 20040515
  2. NORVIR [Suspect]
     Indication: HIV INFECTION
     Route: 048
     Dates: start: 19991101, end: 20001224
  3. NORVIR [Suspect]
     Route: 048
     Dates: start: 20040425
  4. VIDEX EC [Suspect]
     Indication: HIV INFECTION
     Route: 048
     Dates: start: 20010721, end: 20040514
  5. STOCRIN [Suspect]
     Indication: HIV INFECTION
     Route: 048
     Dates: start: 20000724, end: 20000725
  6. STOCRIN [Suspect]
     Route: 048
     Dates: start: 20000925, end: 20001002
  7. KALETRA [Suspect]
     Indication: HIV INFECTION
     Route: 048
     Dates: start: 20001225, end: 20040424
  8. REYATAZ [Concomitant]
     Indication: HIV INFECTION
     Route: 048
     Dates: start: 20040425
  9. VIREAD [Concomitant]
     Indication: HIV INFECTION
     Route: 048
     Dates: start: 20040425
  10. CROSS EIGHT M [Concomitant]
     Route: 042
     Dates: start: 20050401

REACTIONS (2)
  - DYSPNOEA [None]
  - PULMONARY HYPERTENSION [None]
